FAERS Safety Report 6707062-7 (Version None)
Quarter: 2010Q2

REPORT INFORMATION
  Report Type: 
  Country: None (occurrence: None)
  Receive Date: 20100503
  Receipt Date: 20100421
  Transmission Date: 20101027
  Serious: Yes (Death)
  Sender: FDA-Public Use
  Company Number: US-WATSON-2010-05351

PATIENT
  Age: 57 Year
  Sex: Female
  Weight: 50.794 kg

DRUGS (2)
  1. FENTANYL-75 [Suspect]
     Indication: BACK PAIN
     Dosage: 1 PATCH, Q 3 DAYS
     Route: 062
     Dates: end: 20100101
  2. FENTANYL-75 [Suspect]
     Dosage: 1 PATCH, Q 3 DAYS
     Route: 062
     Dates: start: 20050101

REACTIONS (2)
  - DRUG LEVEL INCREASED [None]
  - OVERDOSE [None]
